FAERS Safety Report 14120801 (Version 2)
Quarter: 2017Q4

REPORT INFORMATION
  Report Type: Spontaneous
  Country: RU (occurrence: RU)
  Receive Date: 20171024
  Receipt Date: 20171025
  Transmission Date: 20180321
  Serious: Yes (Hospitalization, Other)
  Sender: FDA-Public Use
  Company Number: RU-ASTELLAS-2017US042829

PATIENT
  Sex: Male

DRUGS (8)
  1. TACROLIMUS. [Suspect]
     Active Substance: TACROLIMUS
     Indication: FOETAL EXPOSURE DURING PREGNANCY
     Dosage: UNK UNK, UNKNOWN FREQ.
     Route: 064
  2. AZATHIOPRINE. [Concomitant]
     Active Substance: AZATHIOPRINE
     Route: 064
  3. TACROLIMUS. [Suspect]
     Active Substance: TACROLIMUS
     Route: 064
  4. METHYLPREDNISOLONE. [Concomitant]
     Active Substance: METHYLPREDNISOLONE
     Indication: FOETAL EXPOSURE DURING PREGNANCY
     Dosage: UNK UNK, UNKNOWN FREQ.
     Route: 065
  5. WARFARIN [Concomitant]
     Active Substance: WARFARIN
     Indication: FOETAL EXPOSURE DURING PREGNANCY
     Dosage: UNK UNK, UNKNOWN FREQ.
     Route: 065
     Dates: end: 201102
  6. THROMBO ASS [Concomitant]
     Active Substance: ASPIRIN
     Indication: FOETAL EXPOSURE DURING PREGNANCY
     Dosage: UNK UNK, UNKNOWN FREQ.
     Route: 065
  7. PLAVIX [Concomitant]
     Active Substance: CLOPIDOGREL BISULFATE
     Indication: FOETAL EXPOSURE DURING PREGNANCY
     Dosage: UNK UNK, UNKNOWN FREQ.
     Route: 065
  8. AZATHIOPRINE. [Concomitant]
     Active Substance: AZATHIOPRINE
     Indication: FOETAL EXPOSURE DURING PREGNANCY
     Dosage: UNK UNK, UNKNOWN FREQ.
     Route: 064

REACTIONS (7)
  - Respiratory disorder [Unknown]
  - Congenital pneumonia [Unknown]
  - Neonatal asphyxia [Unknown]
  - Atrial septal defect [Unknown]
  - Premature baby [Unknown]
  - Cardiac disorder [Unknown]
  - Hyperbilirubinaemia neonatal [Unknown]
